FAERS Safety Report 6303497-5 (Version None)
Quarter: 2009Q3

REPORT INFORMATION
  Report Type: 
  Country: None (occurrence: None)
  Receive Date: 20090810
  Receipt Date: 20090806
  Transmission Date: 20100115
  Serious: Yes (Death, Hospitalization, Other)
  Sender: FDA-Public Use
  Company Number: PHEH2009US06850

PATIENT
  Sex: Female
  Weight: 72.1 kg

DRUGS (2)
  1. GLEEVEC [Suspect]
     Indication: GASTROINTESTINAL STROMAL TUMOUR
     Dosage: 400 MG, BID
     Route: 048
     Dates: start: 20050101, end: 20090301
  2. SUTENT [Concomitant]
     Indication: GASTROINTESTINAL STROMAL TUMOUR

REACTIONS (8)
  - DRUG ABUSER [None]
  - EJECTION FRACTION DECREASED [None]
  - ENDOCARDITIS [None]
  - MALIGNANT NEOPLASM PROGRESSION [None]
  - MASS [None]
  - MENTAL DISORDER [None]
  - METASTASES TO LUNG [None]
  - RENAL FAILURE ACUTE [None]
